FAERS Safety Report 10269202 (Version 1)
Quarter: 2014Q2

REPORT INFORMATION
  Report Type: Spontaneous
  Country: AU (occurrence: AU)
  Receive Date: 20140630
  Receipt Date: 20140630
  Transmission Date: 20141212
  Serious: Yes (Death, Other)
  Sender: FDA-Public Use
  Company Number: PHHY2014AU078700

PATIENT
  Sex: 0

DRUGS (1)
  1. METHOTREXATE [Suspect]
     Indication: ARTHRITIS
     Route: 048

REACTIONS (2)
  - Overdose [Fatal]
  - Drug dispensing error [Unknown]
